FAERS Safety Report 24610572 (Version 2)
Quarter: 2025Q1

REPORT INFORMATION
  Report Type: Spontaneous
  Country: CA (occurrence: CA)
  Receive Date: 20241112
  Receipt Date: 20250108
  Transmission Date: 20250408
  Serious: Yes (Other)
  Sender: PFIZER
  Company Number: CA-PFIZER INC-202400297830

PATIENT
  Age: 41 Year

DRUGS (4)
  1. METHOTREXATE SODIUM [Suspect]
     Active Substance: METHOTREXATE SODIUM
     Indication: Antisynthetase syndrome
     Dosage: 25 MG, WEEKLY (ONCE)
     Route: 058
     Dates: start: 202307
  2. AZATHIOPRINE [Suspect]
     Active Substance: AZATHIOPRINE
     Dates: start: 202312
  3. PREDNISONE [Suspect]
     Active Substance: PREDNISONE
     Indication: Antisynthetase syndrome
     Route: 048
  4. PREDNISONE [Suspect]
     Active Substance: PREDNISONE
     Dosage: 2.5 MG, 1X/DAY
     Route: 048
     Dates: start: 202307

REACTIONS (3)
  - Arrhythmia [Unknown]
  - Drug ineffective for unapproved indication [Unknown]
  - Off label use [Unknown]
